FAERS Safety Report 17884236 (Version 3)
Quarter: 2020Q3

REPORT INFORMATION
  Report Type: Spontaneous
  Country: DE (occurrence: DE)
  Receive Date: 20200611
  Receipt Date: 20200701
  Transmission Date: 20201103
  Serious: Yes (Death, Hospitalization)
  Sender: FDA-Public Use
  Company Number: NVSC2020DE161915

PATIENT
  Sex: Female
  Weight: 92 kg

DRUGS (8)
  1. DOXORUBICIN [Suspect]
     Active Substance: DOXORUBICIN
     Indication: BRONCHIAL CARCINOMA
     Dosage: UNK (ACC. 2ND CYCLE THERAPY)
     Route: 065
  2. PEGFILGRASTIM [Suspect]
     Active Substance: PEGFILGRASTIM
     Dosage: 6 MG(STRENGTH: 6 MG, MANUFACTURER DATE: JUL?2022, 5520005 ON 18?MAR?2020, EXPIRATION DATE: MAR?2022)
     Route: 058
     Dates: start: 20200131
  3. PEGFILGRASTIM [Suspect]
     Active Substance: PEGFILGRASTIM
     Dosage: 6 MG(CYCLE 3)
     Route: 058
     Dates: start: 20200318
  4. CYCLOPHOSPHAMIDE. [Suspect]
     Active Substance: CYCLOPHOSPHAMIDE
     Indication: BRONCHIAL CARCINOMA
     Dosage: UNK(3RD CYCLE)
     Route: 042
     Dates: start: 20200504, end: 20200504
  5. DOXORUBICIN [Suspect]
     Active Substance: DOXORUBICIN
     Indication: BRONCHIAL CARCINOMA
     Dosage: UNK(STRENGTH 86 MG 3RD CYCLE)
     Route: 042
     Dates: start: 20200504, end: 20200504
  6. CYCLOPHOSPHAMIDE. [Suspect]
     Active Substance: CYCLOPHOSPHAMIDE
     Indication: BRONCHIAL CARCINOMA
     Dosage: UNK  (ACC. 2ND CYCLE THERAPY)
     Route: 065
  7. VINCRISTINE [Concomitant]
     Active Substance: VINCRISTINE
     Indication: BRONCHIAL CARCINOMA
     Dosage: UNK  ( 2ND CYCLE THERAPY)
     Route: 065
  8. PEGFILGRASTIM [Suspect]
     Active Substance: PEGFILGRASTIM
     Indication: PRODUCT USED FOR UNKNOWN INDICATION
     Dosage: 6 MG (MANUFACTURER DATE: JUN?2022)
     Route: 058
     Dates: start: 20200109

REACTIONS (6)
  - Atypical pneumonia [Recovered/Resolved]
  - Mucosal inflammation [Unknown]
  - Agranulocytosis [Unknown]
  - Pancytopenia [Unknown]
  - Sepsis [Fatal]
  - COVID-19 [Recovered/Resolved]

NARRATIVE: CASE EVENT DATE: 20200222
